FAERS Safety Report 9248063 (Version 1)
Quarter: 2013Q1

REPORT INFORMATION
  Report Type: Spontaneous
  Country: US (occurrence: None)
  Receive Date: 20130305
  Receipt Date: 20130305
  Transmission Date: 20140127
  Serious: Yes (Other)
  Sender: FDA-Public Use
  Company Number: 163-21880-12053652

PATIENT
  Age: 54 Year
  Sex: Female
  Weight: 54.43 kg

DRUGS (3)
  1. REVLIMID [Suspect]
     Indication: PLASMA CELL MYELOMA
     Route: 048
     Dates: start: 201110
  2. VELCADE(BORTEZOMIB) (UNKNOWN) [Concomitant]
  3. DEXAMETHASONE(DEXAMETHASONE) (UNKNOWN) [Concomitant]

REACTIONS (2)
  - Platelet count decreased [None]
  - White blood cell count decreased [None]
